FAERS Safety Report 4297297-8 (Version None)
Quarter: 2004Q1

REPORT INFORMATION
  Report Type: 
  Country: None (occurrence: None)
  Receive Date: 20040218
  Receipt Date: 20040211
  Transmission Date: 20041129
  Serious: Yes (Hospitalization)
  Sender: FDA-Public Use
  Company Number: 200410578FR

PATIENT
  Age: 60 Year
  Sex: Male

DRUGS (5)
  1. FUROSEMIDE [Suspect]
     Route: 048
     Dates: end: 20031218
  2. PNEUMOREL 80 MG [Suspect]
     Route: 048
     Dates: end: 20031218
  3. DUPHALAC [Suspect]
     Route: 048
     Dates: end: 20031218
  4. DIFFU K [Suspect]
     Route: 048
     Dates: end: 20031218
  5. OXEOL [Suspect]
     Route: 048
     Dates: end: 20031218

REACTIONS (2)
  - HAEMATEMESIS [None]
  - PEPTIC ULCER [None]
